FAERS Safety Report 11494217 (Version 1)
Quarter: 2015Q3

REPORT INFORMATION
  Report Type: Spontaneous
  Country: US (occurrence: US)
  Receive Date: 20150911
  Receipt Date: 20150911
  Transmission Date: 20151125
  Serious: No
  Sender: FDA-Public Use
  Company Number: US-ROCHE-1019552

PATIENT
  Sex: Male

DRUGS (3)
  1. PEGASYS [Suspect]
     Active Substance: PEGINTERFERON ALFA-2A
     Indication: HEPATITIS C
     Route: 065
     Dates: start: 20111010
  2. INCIVEK [Concomitant]
     Active Substance: TELAPREVIR
     Indication: HEPATITIS C
     Route: 065
     Dates: start: 20111008, end: 20111231
  3. RIBAVIRIN. [Suspect]
     Active Substance: RIBAVIRIN
     Indication: HEPATITIS C
     Route: 065
     Dates: start: 20111010

REACTIONS (7)
  - Fatigue [Unknown]
  - Upper respiratory tract congestion [Unknown]
  - Anal pruritus [Unknown]
  - Dry mouth [Unknown]
  - Insomnia [Unknown]
  - Rectal haemorrhage [Unknown]
  - Anorectal discomfort [Unknown]
